FAERS Safety Report 7866612-8 (Version None)
Quarter: 2011Q4

REPORT INFORMATION
  Report Type: 
  Country: None (occurrence: None)
  Receive Date: 20111028
  Receipt Date: 20110713
  Transmission Date: 20120403
  Serious: No
  Sender: FDA-Public Use
  Company Number: US-GLAXOSMITHKLINE-A0936699A

PATIENT
  Age: 74 Year
  Sex: Female

DRUGS (8)
  1. ADVAIR DISKUS 100/50 [Suspect]
     Indication: PRODUCT USED FOR UNKNOWN INDICATION
     Route: 055
     Dates: start: 20070101
  2. ZOLPIDEM [Concomitant]
  3. PROVENTIL-HFA [Concomitant]
  4. LEVOTHYROXINE SODIUM [Concomitant]
  5. OXYCONTIN [Concomitant]
  6. BUPROPION HCL [Concomitant]
  7. LISINOPRIL [Concomitant]
  8. CYMBALTA [Concomitant]

REACTIONS (2)
  - DYSPNOEA [None]
  - PRODUCT QUALITY ISSUE [None]
